FAERS Safety Report 7112896-3 (Version None)
Quarter: 2010Q4

REPORT INFORMATION
  Report Type: 
  Country: None (occurrence: None)
  Receive Date: 20101119
  Receipt Date: 20100428
  Transmission Date: 20110411
  Serious: No
  Sender: FDA-Public Use
  Company Number: US-BRISTOL-MYERS SQUIBB COMPANY-15083272

PATIENT
  Age: 73 Year
  Sex: Male
  Weight: 84 kg

DRUGS (3)
  1. AVALIDE [Suspect]
     Indication: HYPERTENSION
  2. CARVEDILOL [Concomitant]
  3. LOVAZA [Concomitant]

REACTIONS (1)
  - FLATULENCE [None]
